FAERS Safety Report 9264113 (Version 2)
Quarter: 2013Q4

REPORT INFORMATION
  Report Type: Spontaneous
  Country: GB (occurrence: GB)
  Receive Date: 20130430
  Receipt Date: 20131108
  Transmission Date: 20140711
  Serious: Yes (Other)
  Sender: FDA-Public Use
  Company Number: GB-TEVA-400583ISR

PATIENT
  Age: 85 Year
  Sex: Female
  Weight: 69.85 kg

DRUGS (15)
  1. PERINDOPRIL ERBUMINE [Suspect]
     Indication: HYPERTENSION
  2. ALENDRONIC ACID [Concomitant]
     Dates: start: 20121203
  3. ASPIRIN [Concomitant]
     Dates: start: 20121224, end: 20130121
  4. ATORVASTATIN [Concomitant]
     Dates: start: 20121224, end: 20130121
  5. CLOPIDOGREL [Concomitant]
     Dates: start: 20121224
  6. RANITIDINE [Concomitant]
     Dates: start: 20121224
  7. NAPROXEN [Concomitant]
     Dates: start: 20130102, end: 20130130
  8. BENDROFLUMETHIAZIDE [Concomitant]
     Dates: start: 20130102
  9. PARACETAMOL [Concomitant]
     Dates: start: 20130109, end: 20130121
  10. PREGABALIN [Concomitant]
     Dates: start: 20130115, end: 20130312
  11. BRINZOLAMIDE [Concomitant]
     Dates: start: 20130131
  12. TIMOLOL [Concomitant]
     Dates: start: 20130131
  13. SYSTANE [Concomitant]
     Dates: start: 20130131
  14. ADCAL [Concomitant]
     Dates: start: 20130308, end: 20130405
  15. OMEPRAZOLE [Concomitant]
     Dates: start: 20130314, end: 20130411

REACTIONS (1)
  - Raynaud^s phenomenon [Recovering/Resolving]
